FAERS Safety Report 12161222 (Version 1)
Quarter: 2016Q1

REPORT INFORMATION
  Report Type: Spontaneous
  Country: US (occurrence: US)
  Receive Date: 20160308
  Receipt Date: 20160308
  Transmission Date: 20160526
  Serious: Yes (Hospitalization)
  Sender: FDA-Public Use
  Company Number: US-FRI-1000082965

PATIENT
  Age: 85 Year
  Sex: Male
  Weight: 84.8 kg

DRUGS (11)
  1. MULTIVITAMINS [Concomitant]
     Active Substance: VITAMINS
  2. SALMON OIL [Concomitant]
     Active Substance: FISH OIL
  3. NAPROXEN. [Concomitant]
     Active Substance: NAPROXEN
  4. ARICEPT [Concomitant]
     Active Substance: DONEPEZIL HYDROCHLORIDE
     Dosage: 10MG
  5. VITAMIN B12 [Concomitant]
     Active Substance: CYANOCOBALAMIN
  6. NORVASC [Concomitant]
     Active Substance: AMLODIPINE BESYLATE
     Dosage: 5 MG
  7. NAMENDA XR [Suspect]
     Active Substance: MEMANTINE HYDROCHLORIDE
     Indication: MEMORY IMPAIRMENT
  8. ALLOPURINOL. [Concomitant]
     Active Substance: ALLOPURINOL
  9. PRILOSEC [Concomitant]
     Active Substance: OMEPRAZOLE MAGNESIUM
  10. VITAMIN C [Concomitant]
     Active Substance: ASCORBIC ACID
  11. VITAMIN D [Concomitant]
     Active Substance: CHOLECALCIFEROL

REACTIONS (13)
  - Dizziness [Recovering/Resolving]
  - Aphasia [Not Recovered/Not Resolved]
  - Gait apraxia [Recovering/Resolving]
  - Sleep apnoea syndrome [Recovering/Resolving]
  - Deafness bilateral [Not Recovered/Not Resolved]
  - Vertigo positional [Recovering/Resolving]
  - Coordination abnormal [Recovering/Resolving]
  - Balance disorder [Recovering/Resolving]
  - Off label use [Not Recovered/Not Resolved]
  - Joint injury [Recovering/Resolving]
  - Memory impairment [Not Recovered/Not Resolved]
  - Tinnitus [Not Recovered/Not Resolved]
  - Fall [Recovering/Resolving]

NARRATIVE: CASE EVENT DATE: 201601
